FAERS Safety Report 8103293-2 (Version None)
Quarter: 2011Q4

REPORT INFORMATION
  Report Type: 
  Country: None (occurrence: None)
  Receive Date: 20111222
  Receipt Date: 20110920
  Transmission Date: 20120403
  Serious: Yes (Hospitalization)
  Sender: FDA-Public Use
  Company Number: UTC-010360

PATIENT
  Age: 56 Year
  Sex: Female

DRUGS (4)
  1. TYVASO [Suspect]
     Indication: PULMONARY ARTERIAL HYPERTENSION
     Dosage: 216 MCG (54 MCG, 4 IN 1 D), INHALATION
     Route: 055
     Dates: start: 20110729
  2. OXYGEN (OXYGEN) [Concomitant]
  3. ADCIRCA [Concomitant]
  4. ASPIRIN [Concomitant]

REACTIONS (1)
  - PULMONARY THROMBOSIS [None]
